FAERS Safety Report 13807337 (Version 1)
Quarter: 2017Q3

REPORT INFORMATION
  Report Type: Report from Study
  Country: None (occurrence: TR)
  Receive Date: 20170728
  Receipt Date: 20170728
  Transmission Date: 20171127
  Serious: Yes (Other)
  Sender: FDA-Public Use
  Company Number: TR-ABBVIE-17K-161-2054134-00

PATIENT
  Age: 53 Year
  Sex: Female
  Weight: 82 kg

DRUGS (1)
  1. HUMIRA [Suspect]
     Active Substance: ADALIMUMAB
     Indication: ANKYLOSING SPONDYLITIS
     Route: 058
     Dates: start: 20170418, end: 201706

REACTIONS (2)
  - Brain oedema [Unknown]
  - Tuberculosis [Unknown]

NARRATIVE: CASE EVENT DATE: 201706
